FAERS Safety Report 4368098-7 (Version None)
Quarter: 2004Q2

REPORT INFORMATION
  Report Type: 
  Country: None (occurrence: None)
  Receive Date: 20040602
  Receipt Date: 20040521
  Transmission Date: 20050107
  Serious: Yes (Other)
  Sender: FDA-Public Use
  Company Number: US-AMGEN-US077736

PATIENT
  Sex: Female
  Weight: 46.8 kg

DRUGS (6)
  1. PROCRIT [Suspect]
     Indication: ANAEMIA OF MALIGNANT DISEASE
     Route: 058
     Dates: start: 20040501
  2. CYTARABINE [Concomitant]
  3. VINCRISTINE [Concomitant]
  4. CYTOXAN [Concomitant]
  5. METHOTREXATE [Concomitant]
  6. MERCAPTOPURINE [Concomitant]

REACTIONS (4)
  - ACUTE LYMPHOCYTIC LEUKAEMIA [None]
  - MALIGNANT NEOPLASM OF SPINAL CORD [None]
  - METASTASIS [None]
  - THERAPEUTIC RESPONSE DELAYED [None]
